FAERS Safety Report 8565657-2 (Version None)
Quarter: 2012Q3

REPORT INFORMATION
  Report Type: 
  Country: None (occurrence: None)
  Receive Date: 20120803
  Receipt Date: 20120724
  Transmission Date: 20120928
  Serious: Yes (Other)
  Sender: FDA-Public Use
  Company Number: JP-JNJFOC-20120800827

PATIENT
  Age: 53 Year
  Sex: Male

DRUGS (3)
  1. SIMPONI [Suspect]
     Indication: RHEUMATOID ARTHRITIS
     Route: 058
     Dates: start: 20120506
  2. SIMPONI [Suspect]
     Route: 058
     Dates: start: 20120721
  3. SIMPONI [Suspect]
     Route: 058
     Dates: start: 20120529

REACTIONS (1)
  - PNEUMONIA [None]
